FAERS Safety Report 4880008-2 (Version None)
Quarter: 2006Q1

REPORT INFORMATION
  Report Type: 
  Country: None (occurrence: None)
  Receive Date: 20060111
  Receipt Date: 20050926
  Transmission Date: 20060701
  Serious: No
  Sender: FDA-Public Use
  Company Number: 2005S1000210

PATIENT

DRUGS (1)
  1. CUBICIN [Suspect]

REACTIONS (1)
  - CREATININE RENAL CLEARANCE DECREASED [None]
